FAERS Safety Report 4501022-2 (Version None)
Quarter: 2004Q4

REPORT INFORMATION
  Report Type: 
  Country: None (occurrence: None)
  Receive Date: 20041115
  Receipt Date: 20041103
  Transmission Date: 20050328
  Serious: Yes (Death, Hospitalization)
  Sender: FDA-Public Use
  Company Number: US-MERCK-0411USA00818

PATIENT
  Age: 60 Year
  Sex: Male

DRUGS (7)
  1. CANCIDAS [Suspect]
     Indication: CANDIDIASIS
     Route: 065
  2. DEXAMETHASONE [Concomitant]
     Route: 065
  3. CYTARABINE [Concomitant]
     Route: 065
  4. METHOTREXATE [Concomitant]
     Route: 065
  5. AMPHOTERICIN B [Concomitant]
     Route: 065
  6. ETOPOSIDE [Concomitant]
     Route: 065
  7. VORICONAZOLE [Concomitant]
     Indication: TRICHOSPORON INFECTION
     Route: 065

REACTIONS (3)
  - DRUG INEFFECTIVE [None]
  - MULTI-ORGAN FAILURE [None]
  - SHOCK [None]
